FAERS Safety Report 5301108-9 (Version None)
Quarter: 2007Q3

REPORT INFORMATION
  Report Type: 
  Country: None (occurrence: None)
  Receive Date: 20070411
  Receipt Date: 20070402
  Transmission Date: 20080115
  Serious: Yes (Other)
  Sender: FDA-Public Use
  Company Number: 000654

PATIENT
  Sex: Female

DRUGS (2)
  1. ZEVALIN [Suspect]
     Indication: NON-HODGKIN'S LYMPHOMA
     Dosage: 0.4 MCI/KG; 1X; IV
     Route: 042
     Dates: start: 20030724, end: 20030724
  2. RITUXIMAB [Concomitant]

REACTIONS (8)
  - CONTUSION [None]
  - EPISTAXIS [None]
  - HERPES ZOSTER [None]
  - NEUTROPENIA [None]
  - PURPURA [None]
  - RASH PRURITIC [None]
  - THROMBOCYTOPENIA [None]
  - WHITE BLOOD CELL COUNT DECREASED [None]
